FAERS Safety Report 7273347-1 (Version None)
Quarter: 2011Q1

REPORT INFORMATION
  Report Type: 
  Country: None (occurrence: None)
  Receive Date: 20110203
  Receipt Date: 20101018
  Transmission Date: 20110831
  Serious: No
  Sender: FDA-Public Use
  Company Number: US-ABBOTT-10P-163-0679773-00

PATIENT
  Sex: Female
  Weight: 45.4 kg

DRUGS (3)
  1. SYNTHROID [Suspect]
     Dosage: ADJUSTED MANY TIMES TO MANY DIFFERENT DOSES DUE TO ABNORMAL TSH LEVELS.
     Route: 048
  2. SYNTHROID [Suspect]
     Route: 048
     Dates: start: 20100801
  3. SYNTHROID [Suspect]
     Indication: HYPOTHYROIDISM
     Dosage: UNKNOWN ADJUSTED DOSES, BUT THEY WERE GRADUAL.
     Dates: start: 20000101

REACTIONS (4)
  - WEIGHT DECREASED [None]
  - THYROID FUNCTION TEST ABNORMAL [None]
  - ACNE [None]
  - PRURITUS GENERALISED [None]
